FAERS Safety Report 5584331-8 (Version None)
Quarter: 2008Q1

REPORT INFORMATION
  Report Type: 
  Country: None (occurrence: None)
  Receive Date: 20080108
  Receipt Date: 20080104
  Transmission Date: 20080703
  Serious: Yes (Other)
  Sender: FDA-Public Use
  Company Number: PHFR2008GB00479

PATIENT
  Sex: Male

DRUGS (3)
  1. TEGRETOL [Suspect]
     Dosage: 400 MG, BID
     Route: 065
  2. TERBINAFINE [Suspect]
     Indication: NAIL INFECTION
     Dosage: 250 MG, QD
     Route: 065
  3. LAMICTAL [Concomitant]
     Dosage: 100 MG/DAY
     Route: 065

REACTIONS (2)
  - DRUG INTERACTION [None]
  - PETIT MAL EPILEPSY [None]
